FAERS Safety Report 14447841 (Version 4)
Quarter: 2019Q1

REPORT INFORMATION
  Report Type: Spontaneous
  Country: JP (occurrence: JP)
  Receive Date: 20180126
  Receipt Date: 20190302
  Transmission Date: 20190417
  Serious: Yes (Death, Other)
  Sender: FDA-Public Use
  Company Number: JP-BAYER-2017-195318

PATIENT
  Age: 65 Year
  Sex: Male
  Weight: 168 kg

DRUGS (12)
  1. STIVARGA [Suspect]
     Active Substance: REGORAFENIB
     Indication: HEPATOCELLULAR CARCINOMA
     Dosage: DAILY DOSE 80 MG
     Route: 048
     Dates: start: 20171011, end: 20171024
  2. SUINY [Concomitant]
     Active Substance: ANAGLIPTIN
  3. STIVARGA [Suspect]
     Active Substance: REGORAFENIB
     Indication: HEPATOCELLULAR CARCINOMA
     Dosage: 160 MG, QD
     Route: 048
     Dates: start: 20170807, end: 20170825
  4. DABIGATRAN ETEXILATE MESILATE [Concomitant]
     Active Substance: DABIGATRAN ETEXILATE MESYLATE
  5. STIVARGA [Suspect]
     Active Substance: REGORAFENIB
     Indication: HEPATOCELLULAR CARCINOMA
     Dosage: DAILY DOSE 120 MG
     Route: 048
     Dates: start: 20170913, end: 20170927
  6. STIVARGA [Suspect]
     Active Substance: REGORAFENIB
     Indication: HEPATOCELLULAR CARCINOMA
     Dosage: UNK
     Route: 048
     Dates: end: 20171201
  7. URSODEOXYCHOLIC ACID [Concomitant]
     Active Substance: URSODIOL
  8. LOBU [Concomitant]
     Active Substance: LOBUCAVIR
  9. SENNARIDE [Concomitant]
     Active Substance: SENNOSIDES A AND B
  10. LIVACT [AMINO ACIDS NOS] [Concomitant]
  11. TELMISARTAN. [Concomitant]
     Active Substance: TELMISARTAN
  12. ESOMEPRAZOLE. [Concomitant]
     Active Substance: ESOMEPRAZOLE MAGNESIUM

REACTIONS (9)
  - Erythema [Recovered/Resolved]
  - Pain in extremity [Recovered/Resolved]
  - Hepatocellular carcinoma [Fatal]
  - Skin exfoliation [Recovered/Resolved]
  - Palmar-plantar erythrodysaesthesia syndrome [Recovered/Resolved]
  - Palmar-plantar erythrodysaesthesia syndrome [Recovered/Resolved]
  - Liver disorder [Fatal]
  - Blister [Recovered/Resolved]
  - Blister rupture [Recovered/Resolved]

NARRATIVE: CASE EVENT DATE: 20170823
